FAERS Safety Report 9705962 (Version 3)
Quarter: 2015Q4

REPORT INFORMATION
  Report Type: Spontaneous
  Country: US (occurrence: US)
  Receive Date: 20131122
  Receipt Date: 20151221
  Transmission Date: 20160305
  Serious: Yes (Other)
  Sender: FDA-Public Use
  Company Number: US-GLAXOSMITHKLINE-A1050838A

PATIENT
  Sex: Female

DRUGS (1)
  1. ADVAIR HFA [Suspect]
     Active Substance: FLUTICASONE PROPIONATE\SALMETEROL XINAFOATE
     Indication: RESPIRATORY DISORDER
     Dosage: 250/50 MCG
     Route: 065
     Dates: start: 20080418

REACTIONS (5)
  - Dysphonia [Unknown]
  - Throat cancer [Unknown]
  - Pharyngeal operation [Unknown]
  - Liposarcoma [Recovered/Resolved]
  - Vocal cordectomy [Unknown]

NARRATIVE: CASE EVENT DATE: 2011
